FAERS Safety Report 6601032-5 (Version None)
Quarter: 2010Q1

REPORT INFORMATION
  Report Type: 
  Country: None (occurrence: None)
  Receive Date: 20100225
  Receipt Date: 20100216
  Transmission Date: 20100710
  Serious: Yes (Hospitalization)
  Sender: FDA-Public Use
  Company Number: US-JNJFOC-20100207707

PATIENT
  Sex: Female
  Weight: 61.24 kg

DRUGS (3)
  1. DURAGESIC-100 [Suspect]
     Indication: BACK PAIN
     Route: 062
  2. CALCIUM [Concomitant]
     Indication: BONE DISORDER
     Route: 048
  3. DRUGS FOR TREATMENT OF BONE DISEASES [Concomitant]
     Indication: BONE DISORDER
     Route: 048

REACTIONS (3)
  - ABDOMINAL DISCOMFORT [None]
  - DEHYDRATION [None]
  - DRUG INEFFECTIVE [None]
